FAERS Safety Report 15613647 (Version 1)
Quarter: 2018Q4

REPORT INFORMATION
  Report Type: Spontaneous
  Country: IN (occurrence: IN)
  Receive Date: 20181113
  Receipt Date: 20181113
  Transmission Date: 20190205
  Serious: Yes (Hospitalization)
  Sender: FDA-Public Use
  Company Number: IN-MYLANLABS-2018M1085977

PATIENT
  Age: 64 Year
  Sex: Female

DRUGS (4)
  1. NORMAL SALINE [Concomitant]
     Active Substance: SODIUM CHLORIDE
     Indication: PRODUCT USED FOR UNKNOWN INDICATION
     Route: 042
  2. POTASSIUM CHLORIDE. [Suspect]
     Active Substance: POTASSIUM CHLORIDE
     Indication: HYPOKALAEMIA
     Dosage: AT THE RATE OF 10 MEQ/H; APROXIMATELY 250 MEQ/DAY
     Route: 042
  3. POTASSIUM CHLORIDE. [Suspect]
     Active Substance: POTASSIUM CHLORIDE
     Dosage: 250 MEQ OF POTASSIUM (IV) REPLACEMENT FOR 4 DAYS
     Route: 042
  4. AMIODARONE [Suspect]
     Active Substance: AMIODARONE
     Indication: VENTRICULAR TACHYCARDIA
     Dosage: STAT; BOLUS FOLLOWED BY INFUSION
     Route: 050

REACTIONS (1)
  - Drug ineffective [Unknown]
